FAERS Safety Report 7493374-9 (Version None)
Quarter: 2011Q2

REPORT INFORMATION
  Report Type: 
  Country: None (occurrence: None)
  Receive Date: 20110520
  Receipt Date: 20110506
  Transmission Date: 20111010
  Serious: Yes (Other)
  Sender: FDA-Public Use
  Company Number: CA-ELI_LILLY_AND_COMPANY-CA201105001719

PATIENT
  Sex: Male

DRUGS (4)
  1. OXAZEPAM [Concomitant]
  2. LORAZEPAM [Concomitant]
  3. PAROXETINE HCL [Concomitant]
  4. ZYPREXA [Suspect]
     Indication: FRONTOTEMPORAL DEMENTIA
     Dosage: 5 MG, QD
     Dates: start: 19990124

REACTIONS (8)
  - ATRIAL FIBRILLATION [None]
  - FURUNCLE [None]
  - OFF LABEL USE [None]
  - BLOOD CHOLESTEROL INCREASED [None]
  - TYPE 2 DIABETES MELLITUS [None]
  - CEREBROVASCULAR ACCIDENT [None]
  - ASPARTATE AMINOTRANSFERASE INCREASED [None]
  - WEIGHT INCREASED [None]
